FAERS Safety Report 4874392-3 (Version None)
Quarter: 2006Q1

REPORT INFORMATION
  Report Type: 
  Country: None (occurrence: None)
  Receive Date: 20060104
  Receipt Date: 20051220
  Transmission Date: 20060701
  Serious: Yes (Hospitalization, Other)
  Sender: FDA-Public Use
  Company Number: 2005115879

PATIENT
  Sex: Female

DRUGS (2)
  1. DIFLUCAN [Suspect]
     Indication: ILL-DEFINED DISORDER
     Dosage: (400 MG,), ORAL
     Route: 048
  2. AMBISOME [Suspect]
     Indication: ILL-DEFINED DISORDER
     Dates: start: 20050101, end: 20050718

REACTIONS (2)
  - ALOPECIA [None]
  - PULMONARY COCCIDIOIDES [None]
